FAERS Safety Report 10143471 (Version 2)
Quarter: 2014Q2

REPORT INFORMATION
  Report Type: Spontaneous
  Country: US (occurrence: US)
  Receive Date: 20140430
  Receipt Date: 20140515
  Transmission Date: 20141212
  Serious: No
  Sender: FDA-Public Use
  Company Number: US-PFIZER INC-2014115023

PATIENT
  Age: 56 Year
  Sex: Female

DRUGS (9)
  1. IBUPROFEN [Suspect]
     Dosage: UNK
  2. TIZANIDINE [Suspect]
     Dosage: UNK
  3. EXCEDRIN [Suspect]
     Indication: HEADACHE
     Dosage: UNK
  4. TYLENOL [Suspect]
     Dosage: UNK
  5. CYCLOBENZAPRINE [Suspect]
     Dosage: UNK
  6. PAROXETINE [Suspect]
     Dosage: UNK
  7. FLUOXETINE [Suspect]
     Indication: DEPRESSION
     Dosage: UNK
  8. FLUOXETINE [Suspect]
     Indication: PAIN
  9. IMMODIUM [Suspect]
     Dosage: UNK

REACTIONS (1)
  - Drug ineffective [Unknown]
